FAERS Safety Report 12905849 (Version 2)
Quarter: 2016Q4

REPORT INFORMATION
  Report Type: Report from Study
  Country: AU (occurrence: AU)
  Receive Date: 20161103
  Receipt Date: 20161130
  Transmission Date: 20170207
  Serious: Yes (Other)
  Sender: FDA-Public Use
  Company Number: AU-SUN PHARMACEUTICAL INDUSTRIES LTD-2016RR-127014

PATIENT
  Age: 37 Year
  Sex: Male

DRUGS (2)
  1. VALPROIC ACID. [Concomitant]
     Active Substance: VALPROIC ACID
     Indication: EPILEPSY
     Dosage: UNK
     Route: 065
     Dates: start: 2008
  2. LEVETIRACETAM. [Suspect]
     Active Substance: LEVETIRACETAM
     Indication: EPILEPSY
     Dosage: UNK
     Route: 065
     Dates: start: 2008

REACTIONS (4)
  - Aggression [Recovered/Resolved]
  - Persecutory delusion [Recovered/Resolved]
  - Thinking abnormal [Recovered/Resolved]
  - Psychotic disorder [Recovered/Resolved]
